FAERS Safety Report 23310538 (Version 1)
Quarter: 2023Q4

REPORT INFORMATION
  Report Type: Spontaneous
  Country: US (occurrence: US)
  Receive Date: 20231218
  Receipt Date: 20231218
  Transmission Date: 20240110
  Serious: No
  Sender: FDA-Public Use
  Company Number: US-PROGENICS PHARMACEUTICALS, INC.-LMI-2023-01295

PATIENT
  Sex: Female

DRUGS (2)
  1. PYLARIFY [Suspect]
     Active Substance: PIFLUFOLASTAT F-18
     Indication: Product used for unknown indication
     Dosage: UNK; (9 MCI WAS ORDERED)
     Dates: start: 20231024, end: 20231024
  2. PYLARIFY [Suspect]
     Active Substance: PIFLUFOLASTAT F-18
     Dosage: UNK
     Dates: start: 20231024, end: 20231024

REACTIONS (1)
  - Occupational exposure to radiation [Unknown]

NARRATIVE: CASE EVENT DATE: 20231024
